FAERS Safety Report 5390493-8 (Version None)
Quarter: 2007Q3

REPORT INFORMATION
  Report Type: 
  Country: None (occurrence: None)
  Receive Date: 20070718
  Receipt Date: 20070419
  Transmission Date: 20080115
  Serious: No
  Sender: FDA-Public Use
  Company Number: US-KINGPHARMUSA00001-K200700499

PATIENT

DRUGS (1)
  1. LEVOXYL [Suspect]
     Indication: THYROIDECTOMY
     Dosage: 75 MCG, QD
     Route: 048
     Dates: end: 20070101

REACTIONS (6)
  - ANXIETY [None]
  - BIPOLAR I DISORDER [None]
  - DEPRESSED MOOD [None]
  - DEPRESSION [None]
  - PALPITATIONS [None]
  - SUICIDAL IDEATION [None]
